FAERS Safety Report 4913378-7 (Version None)
Quarter: 2006Q1

REPORT INFORMATION
  Report Type: 
  Country: None (occurrence: None)
  Receive Date: 20060210
  Receipt Date: 20060201
  Transmission Date: 20060701
  Serious: Yes (Hospitalization, Other)
  Sender: FDA-Public Use
  Company Number: HQWYE164903JAN06

PATIENT
  Age: 51 Year
  Sex: Female

DRUGS (4)
  1. RAPAMUNE [Suspect]
     Indication: PROPHYLAXIS AGAINST TRANSPLANT REJECTION
     Dosage: 3 MG 1X PER 1 DAY, ORAL
     Route: 048
     Dates: start: 20040512
  2. FUROSEMIDE [Concomitant]
  3. XENICAL [Concomitant]
  4. AZATHIOPRINE [Concomitant]

REACTIONS (1)
  - ANAL FISTULA [None]
